FAERS Safety Report 25818662 (Version 1)
Quarter: 2025Q3

REPORT INFORMATION
  Report Type: Spontaneous
  Country: EU (occurrence: EU)
  Receive Date: 20250918
  Receipt Date: 20250918
  Transmission Date: 20251021
  Serious: Yes (Other)
  Sender: MYLAN
  Company Number: None

PATIENT
  Age: 71 Year
  Sex: Male

DRUGS (8)
  1. ATORVASTATIN [Suspect]
     Active Substance: ATORVASTATIN
     Indication: Hypercholesterolaemia
     Dosage: 40 MILLIGRAM, QD (40 MG/DAY)
     Dates: start: 20250724, end: 20250825
  2. ATORVASTATIN [Suspect]
     Active Substance: ATORVASTATIN
     Dosage: 40 MILLIGRAM, QD (40 MG/DAY)
     Route: 048
     Dates: start: 20250724, end: 20250825
  3. ATORVASTATIN [Suspect]
     Active Substance: ATORVASTATIN
     Dosage: 40 MILLIGRAM, QD (40 MG/DAY)
     Route: 048
     Dates: start: 20250724, end: 20250825
  4. ATORVASTATIN [Suspect]
     Active Substance: ATORVASTATIN
     Dosage: 40 MILLIGRAM, QD (40 MG/DAY)
     Dates: start: 20250724, end: 20250825
  5. GLIVEC [Suspect]
     Active Substance: IMATINIB MESYLATE
     Indication: Chronic myeloid leukaemia
     Dosage: 3 DOSAGE FORM, QD (100 MG 3 TABLETS AT LUNCHTIME)
     Dates: start: 202504, end: 20250826
  6. GLIVEC [Suspect]
     Active Substance: IMATINIB MESYLATE
     Dosage: 3 DOSAGE FORM, QD (100 MG 3 TABLETS AT LUNCHTIME)
     Route: 048
     Dates: start: 202504, end: 20250826
  7. GLIVEC [Suspect]
     Active Substance: IMATINIB MESYLATE
     Dosage: 3 DOSAGE FORM, QD (100 MG 3 TABLETS AT LUNCHTIME)
     Route: 048
     Dates: start: 202504, end: 20250826
  8. GLIVEC [Suspect]
     Active Substance: IMATINIB MESYLATE
     Dosage: 3 DOSAGE FORM, QD (100 MG 3 TABLETS AT LUNCHTIME)
     Dates: start: 202504, end: 20250826

REACTIONS (2)
  - Cell death [Recovering/Resolving]
  - Cholestasis [Recovering/Resolving]

NARRATIVE: CASE EVENT DATE: 20250822
